FAERS Safety Report 23818088 (Version 1)
Quarter: 2024Q2

REPORT INFORMATION
  Report Type: Spontaneous
  Country: TW (occurrence: TW)
  Receive Date: 20240506
  Receipt Date: 20240506
  Transmission Date: 20240716
  Serious: Yes (Other)
  Sender: FDA-Public Use
  Company Number: TW-BoehringerIngelheim-2024-BI-024851

PATIENT
  Age: 52 Year
  Sex: Male

DRUGS (7)
  1. AFATINIB [Suspect]
     Active Substance: AFATINIB
     Indication: Nasopharyngeal cancer stage IV
  2. AFATINIB [Suspect]
     Active Substance: AFATINIB
  3. AFATINIB [Suspect]
     Active Substance: AFATINIB
  4. AFATINIB [Suspect]
     Active Substance: AFATINIB
  5. cisplatin-fluorouracil [Concomitant]
     Indication: Nasopharyngeal cancer stage IV
  6. XELODA [Concomitant]
     Active Substance: CAPECITABINE
     Indication: Nasopharyngeal cancer stage IV
  7. PEMBROLIZUMAB [Concomitant]
     Active Substance: PEMBROLIZUMAB
     Indication: Nasopharyngeal cancer stage IV
     Dosage: 100 MG PER MONTH OR 2 MG/KG/MONTH

REACTIONS (4)
  - Immunodeficiency [Unknown]
  - Drug eruption [Unknown]
  - Corneal epithelium defect [Recovered/Resolved]
  - Ophthalmic herpes simplex [Recovered/Resolved]
